FAERS Safety Report 24172547 (Version 1)
Quarter: 2024Q3

REPORT INFORMATION
  Report Type: Spontaneous
  Country: GB (occurrence: GB)
  Receive Date: 20240805
  Receipt Date: 20240805
  Transmission Date: 20241017
  Serious: No
  Sender: ALKEM
  Company Number: GB-ALKEM LABORATORIES LIMITED-GB-ALKEM-2024-14243

PATIENT
  Age: 39 Year
  Sex: Female

DRUGS (11)
  1. ERYTHROMYCIN [Suspect]
     Active Substance: ERYTHROMYCIN
     Indication: Ulcerative keratitis
     Dosage: 500 MILLIGRAM, BID
     Route: 048
  2. METHYLPREDNISOLONE [Suspect]
     Active Substance: METHYLPREDNISOLONE
     Indication: Ulcerative keratitis
     Dosage: 1 GRAM, OD (ONCE A DAY)
     Route: 042
  3. OMEPRAZOLE [Suspect]
     Active Substance: OMEPRAZOLE
     Indication: Ulcerative keratitis
     Dosage: 20 MILLIGRAM, OD
     Route: 048
  4. LEVOFLOXACIN [Suspect]
     Active Substance: LEVOFLOXACIN
     Indication: Ulcerative keratitis
     Dosage: UNK (EYE DROPS, EVERY HOUR)
     Route: 061
  5. LEVOFLOXACIN [Suspect]
     Active Substance: LEVOFLOXACIN
     Dosage: UNK, QID (FOUR TIMES A DAY)
     Route: 061
  6. CYCLOSPORINE [Suspect]
     Active Substance: CYCLOSPORINE
     Indication: Ulcerative keratitis
     Dosage: UNK, TID (EYE OINTMENT)
     Route: 061
  7. PREDNISOLONE [Suspect]
     Active Substance: PREDNISOLONE
     Indication: Ulcerative keratitis
     Dosage: 60 MILLIGRAM, OD (ONCE DAILY)
     Route: 048
  8. PREDNISOLONE [Suspect]
     Active Substance: PREDNISOLONE
     Dosage: 5 MILLIGRAM
     Route: 048
  9. CHLORAMPHENICOL [Suspect]
     Active Substance: CHLORAMPHENICOL
     Indication: Ulcerative keratitis
     Dosage: UNK (OINTMENT NOCTE)
     Route: 061
  10. CYCLOPENTOLATE [Suspect]
     Active Substance: CYCLOPENTOLATE
     Indication: Ulcerative keratitis
     Dosage: UNK, BID (TWICE A DAY)
     Route: 061
  11. DEXAMETHASONE [Suspect]
     Active Substance: DEXAMETHASONE
     Indication: Ulcerative keratitis
     Dosage: UNK, QID (FOUR TIMES A DAY)
     Route: 061

REACTIONS (2)
  - Treatment failure [Unknown]
  - Exposure during pregnancy [Unknown]
